FAERS Safety Report 23201897 (Version 2)
Quarter: 2023Q4

REPORT INFORMATION
  Report Type: Other
  Country: CA (occurrence: None)
  Receive Date: 20231120
  Receipt Date: 20231122
  Transmission Date: 20240110
  Serious: No
  Sender: FDA-Public Use
  Company Number: CA-ROCHE-3373503

PATIENT
  Age: 30 Year
  Sex: Female

DRUGS (3)
  1. OCREVUS [Suspect]
     Active Substance: OCRELIZUMAB
     Indication: Relapsing-remitting multiple sclerosis
     Dosage: 300 MG AT DAY 0 AND 14, THEN 600 MG EVERY 6 MONTH
     Route: 042
     Dates: start: 20230518
  2. CORTISONE [Suspect]
     Active Substance: CORTISONE
     Indication: Product used for unknown indication
     Route: 065
  3. TOLTERODINE [Concomitant]
     Active Substance: TOLTERODINE
     Dosage: DOSE WAS INCREASED TO 4 MG ON 07/SEP/2023

REACTIONS (8)
  - Menstruation irregular [Not Recovered/Not Resolved]
  - Acne [Recovering/Resolving]
  - Dysmenorrhoea [Not Recovered/Not Resolved]
  - Sunburn [Recovering/Resolving]
  - Abdominal pain upper [Not Recovered/Not Resolved]
  - Skin reaction [Unknown]
  - COVID-19 [Not Recovered/Not Resolved]
  - Fatigue [Not Recovered/Not Resolved]

NARRATIVE: CASE EVENT DATE: 20231112
